FAERS Safety Report 22994086 (Version 2)
Quarter: 2023Q4

REPORT INFORMATION
  Report Type: Spontaneous
  Country: US (occurrence: US)
  Receive Date: 20230927
  Receipt Date: 20231226
  Transmission Date: 20240110
  Serious: No
  Sender: FDA-Public Use
  Company Number: US-SA-SAC20230925000211

PATIENT
  Age: 43 Year
  Sex: Female

DRUGS (1)
  1. DUPIXENT [Suspect]
     Active Substance: DUPILUMAB
     Indication: Dermatitis
     Dosage: 300 MG, QOW
     Route: 058

REACTIONS (7)
  - Fatigue [Unknown]
  - Headache [Unknown]
  - Migraine [Unknown]
  - Condition aggravated [Unknown]
  - Pain [Unknown]
  - Injection site pain [Unknown]
  - Product use in unapproved indication [Unknown]
